FAERS Safety Report 5158709-0 (Version None)
Quarter: 2006Q4

REPORT INFORMATION
  Report Type: 
  Country: None (occurrence: None)
  Receive Date: 20061128
  Receipt Date: 20061122
  Transmission Date: 20070319
  Serious: Yes (Hospitalization)
  Sender: FDA-Public Use
  Company Number: US-GLAXOSMITHKLINE-A0628449A

PATIENT
  Age: 44 Year
  Sex: Male

DRUGS (4)
  1. ADVAIR DISKUS 100/50 [Suspect]
     Indication: ASTHMA
     Dosage: 1PUFF TWICE PER DAY
     Route: 055
  2. ALBUTEROL [Concomitant]
  3. BC POWDER [Concomitant]
  4. UNKNOWN DRUG FOR HEARTBURN [Concomitant]

REACTIONS (2)
  - DRUG SCREEN POSITIVE [None]
  - INFLUENZA [None]
